FAERS Safety Report 17650377 (Version 1)
Quarter: 2020Q2

REPORT INFORMATION
  Report Type: Spontaneous
  Country: FR (occurrence: FR)
  Receive Date: 20200409
  Receipt Date: 20200409
  Transmission Date: 20200713
  Serious: Yes (Hospitalization)
  Sender: FDA-Public Use
  Company Number: FR-TEVA-2020-FR-1220882

PATIENT
  Age: 33 Year
  Sex: Male
  Weight: 85 kg

DRUGS (5)
  1. DEPAKOTE [Suspect]
     Active Substance: DIVALPROEX SODIUM
     Indication: TOXICITY TO VARIOUS AGENTS
     Dosage: UNKNOWN QUENTITE
     Dates: start: 20200228, end: 20200228
  2. ALPRAZOLAM. [Suspect]
     Active Substance: ALPRAZOLAM
     Indication: TOXICITY TO VARIOUS AGENTS
     Dosage: UNKNOWN QUENTITE
     Route: 048
     Dates: start: 20200228, end: 20200228
  3. THERALENE 4 POUR CENT, SOLUTION BUVABLE EN GOUTTES [Suspect]
     Active Substance: TRIMEPRAZINE
     Indication: TOXICITY TO VARIOUS AGENTS
     Dosage: UNKNOWN QUENTITE
     Route: 048
     Dates: start: 20200228, end: 20200228
  4. TERCIAN [Suspect]
     Active Substance: CYAMEMAZINE
     Indication: TOXICITY TO VARIOUS AGENTS
     Dosage: UNKNOWN QUENTITE
     Dates: start: 20200228, end: 20200228
  5. VENLAFAXINE [Suspect]
     Active Substance: VENLAFAXINE HYDROCHLORIDE
     Indication: TOXICITY TO VARIOUS AGENTS
     Dosage: UNKNOWN QUENTITE
     Route: 048
     Dates: start: 20200228, end: 20200228

REACTIONS (2)
  - Coma [Recovered/Resolved]
  - Dyspnoea [Recovered/Resolved]

NARRATIVE: CASE EVENT DATE: 20200228
